FAERS Safety Report 20474613 (Version 2)
Quarter: 2023Q2

REPORT INFORMATION
  Report Type: Spontaneous
  Country: US (occurrence: US)
  Receive Date: 20220215
  Receipt Date: 20230613
  Transmission Date: 20230722
  Serious: Yes (Other)
  Sender: FDA-Public Use
  Company Number: US-BEH-2022142029

PATIENT
  Sex: Female

DRUGS (27)
  1. HIZENTRA [Suspect]
     Active Substance: HUMAN IMMUNOGLOBULIN G
     Indication: Immunodeficiency common variable
     Dosage: 12 GRAM, QW
     Route: 058
  2. HIZENTRA [Suspect]
     Active Substance: HUMAN IMMUNOGLOBULIN G
     Dosage: 14 GRAM, QW
     Route: 058
  3. HUMIRA [Concomitant]
     Active Substance: ADALIMUMAB
  4. SUCRALFATE [Concomitant]
     Active Substance: SUCRALFATE
  5. VALACYCLOVIR [Concomitant]
     Active Substance: VALACYCLOVIR HYDROCHLORIDE
  6. SPIRONOLACTONE [Concomitant]
     Active Substance: SPIRONOLACTONE
  7. LISINOPRIL [Concomitant]
     Active Substance: LISINOPRIL
  8. AMBIEN [Concomitant]
     Active Substance: ZOLPIDEM TARTRATE
  9. AMOXICILLIN [Concomitant]
     Active Substance: AMOXICILLIN
  10. FISH OIL [Concomitant]
     Active Substance: FISH OIL
  11. GABAPENTIN [Concomitant]
     Active Substance: GABAPENTIN
  12. INDAPAMIDE [Concomitant]
     Active Substance: INDAPAMIDE
  13. MELOXICAM [Concomitant]
     Active Substance: MELOXICAM
  14. VITAMINS [Concomitant]
     Active Substance: VITAMINS
  15. NORCO [Concomitant]
     Active Substance: ACETAMINOPHEN\HYDROCODONE BITARTRATE
  16. OMEPRAZOLE [Concomitant]
     Active Substance: OMEPRAZOLE
  17. PERCOCET [Concomitant]
     Active Substance: ACETAMINOPHEN\OXYCODONE HYDROCHLORIDE
  18. POTASSIUM [Concomitant]
     Active Substance: POTASSIUM
  19. PROMETHAZINE [Concomitant]
     Active Substance: PROMETHAZINE HYDROCHLORIDE
  20. PROVENTIL [Concomitant]
     Active Substance: ALBUTEROL
  21. PROZAC [Concomitant]
     Active Substance: FLUOXETINE HYDROCHLORIDE
  22. PSEUDOEPHEDRINE [Concomitant]
     Active Substance: PSEUDOEPHEDRINE
  23. VALIUM [Concomitant]
     Active Substance: DIAZEPAM
  24. VITAMIN D NOS [Concomitant]
     Active Substance: VITAMIN D NOS
  25. CEFUROXIME [Concomitant]
     Active Substance: CEFUROXIME
  26. DAPTOMYCIN [Concomitant]
     Active Substance: DAPTOMYCIN
  27. VANCOMYCIN [Concomitant]
     Active Substance: VANCOMYCIN

REACTIONS (5)
  - Burn oral cavity [Unknown]
  - Oral mucosal blistering [Unknown]
  - Tooth loss [Unknown]
  - Fatigue [Unknown]
  - Radiation injury [Unknown]
